FAERS Safety Report 19181060 (Version 1)
Quarter: 2021Q2

REPORT INFORMATION
  Report Type: Spontaneous
  Country: GB (occurrence: GB)
  Receive Date: 20210426
  Receipt Date: 20210426
  Transmission Date: 20210717
  Serious: Yes (Hospitalization, Other)
  Sender: FDA-Public Use
  Company Number: GB-TEVA-2021-GB-1903943

PATIENT
  Age: 74 Year
  Sex: Male

DRUGS (11)
  1. SITAGLIPTIN [Suspect]
     Active Substance: SITAGLIPTIN
     Dosage: 100 MILLIGRAM DAILY;
     Route: 048
  2. SALBUTAMOL [Concomitant]
     Active Substance: ALBUTEROL
     Dosage: PUFFS FOUR TIMES DAIL
     Route: 055
  3. METFORMIN [Suspect]
     Active Substance: METFORMIN HYDROCHLORIDE
     Dosage: 3000 MILLIGRAM DAILY; HELD, RESUME PRIOR TO DISCHARGE
     Route: 048
  4. HYPROMELLOSE [Concomitant]
     Active Substance: HYPROMELLOSES
     Dosage: 8 GTT DAILY; 10ML
     Route: 050
  5. BECLOMETASONE [Concomitant]
     Active Substance: BECLOMETHASONE DIPROPIONATE
  6. HYDROXOCOBALAMIN [Concomitant]
     Active Substance: HYDROXOCOBALAMIN
     Dosage: 1MG/ML, 1 DOSAGE FORMS
  7. FORMOTEROL [Concomitant]
     Active Substance: FORMOTEROL
  8. EZETIMIBE. [Concomitant]
     Active Substance: EZETIMIBE
     Dosage: 10 MILLIGRAM DAILY;
     Route: 048
  9. GLIMEPIRIDE. [Suspect]
     Active Substance: GLIMEPIRIDE
     Dosage: 4 MILLIGRAM DAILY;
     Route: 048
  10. MOMETASONE [Concomitant]
     Active Substance: MOMETASONE
     Dosage: 200 MICROGRAM DAILY; EACH NOSTRIL. 50MCG/DOSE.  THEN REDUCE WHEN SYMPTOMS UNDER CONTROL
     Dates: start: 20200922
  11. RAMIPRIL. [Concomitant]
     Active Substance: RAMIPRIL
     Dosage: 2.5 MILLIGRAM DAILY;
     Route: 048

REACTIONS (3)
  - Seizure [Unknown]
  - Hypoglycaemia [Recovered/Resolved]
  - Pneumonia aspiration [Unknown]
